FAERS Safety Report 10649710 (Version 2)
Quarter: 2014Q4

REPORT INFORMATION
  Report Type: Spontaneous
  Country: DE (occurrence: JP)
  Receive Date: 20141212
  Receipt Date: 20141219
  Transmission Date: 20150529
  Serious: Yes (Hospitalization)
  Sender: FDA-Public Use
  Company Number: JP-FRI-1000073063

PATIENT
  Age: 89 Year
  Sex: Female

DRUGS (4)
  1. MEMANTINE [Suspect]
     Active Substance: MEMANTINE
     Dosage: 10 MG
  2. MEMANTINE [Suspect]
     Active Substance: MEMANTINE
     Dosage: 20 MG
  3. MEMANTINE [Suspect]
     Active Substance: MEMANTINE
     Indication: DEMENTIA ALZHEIMER^S TYPE
     Dosage: 5 MG
  4. MEMANTINE [Suspect]
     Active Substance: MEMANTINE
     Dosage: 15 MG

REACTIONS (1)
  - Femur fracture [Recovering/Resolving]
